FAERS Safety Report 9181270 (Version 2)
Quarter: 2013Q1

REPORT INFORMATION
  Report Type: Spontaneous
  Country: US (occurrence: US)
  Receive Date: 20130322
  Receipt Date: 20130322
  Transmission Date: 20140127
  Serious: No
  Sender: FDA-Public Use
  Company Number: US-MYLANLABS-2012S1025771

PATIENT
  Age: 80 Year
  Sex: Male

DRUGS (4)
  1. EMSAM [Suspect]
     Indication: DEPRESSION
     Dosage: QD
     Route: 062
     Dates: start: 201210
  2. EMSAM [Suspect]
     Indication: DEPRESSION
     Dosage: QD
     Route: 062
     Dates: start: 20121110
  3. BABY ASPIRIN [Concomitant]
  4. ACETAMINOPHEN [Concomitant]

REACTIONS (2)
  - Application site rash [Not Recovered/Not Resolved]
  - Dermatitis contact [Not Recovered/Not Resolved]
